FAERS Safety Report 7261265-4 (Version None)
Quarter: 2011Q1

REPORT INFORMATION
  Report Type: 
  Country: None (occurrence: None)
  Receive Date: 20110130
  Receipt Date: 20100920
  Transmission Date: 20110831
  Serious: No
  Sender: FDA-Public Use
  Company Number: US-ABBOTT-10P-163-0672184-00

PATIENT
  Age: 65 Year
  Sex: Male

DRUGS (3)
  1. UNKNOWN MEDICATION [Concomitant]
  2. HUMIRA [Suspect]
     Indication: ANKYLOSING SPONDYLITIS
     Dates: start: 20091101, end: 20100801
  3. UNKNOWN MEDICATION [Concomitant]
     Indication: PRODUCT USED FOR UNKNOWN INDICATION
     Route: 061

REACTIONS (2)
  - RASH ERYTHEMATOUS [None]
  - HYPERSENSITIVITY [None]
